FAERS Safety Report 8365007-0 (Version None)
Quarter: 2012Q2

REPORT INFORMATION
  Report Type: 
  Country: None (occurrence: None)
  Receive Date: 20120516
  Receipt Date: 20120509
  Transmission Date: 20120825
  Serious: Yes (Other)
  Sender: FDA-Public Use
  Company Number: BR-GLAXOSMITHKLINE-A0977604A

PATIENT
  Age: 38 Year
  Sex: Female

DRUGS (3)
  1. ZOFRAN [Suspect]
     Indication: PRODUCT USED FOR UNKNOWN INDICATION
     Dosage: 1TAB SINGLE DOSE
     Route: 065
     Dates: start: 20120509, end: 20120509
  2. CHLORPROMAZINE [Suspect]
     Indication: PRODUCT USED FOR UNKNOWN INDICATION
     Dosage: 4TAB SINGLE DOSE
     Route: 065
     Dates: start: 20120509, end: 20120509
  3. CLONAZEPAM [Suspect]
     Indication: PRODUCT USED FOR UNKNOWN INDICATION
     Dosage: 15TAB SINGLE DOSE
     Route: 065
     Dates: start: 20120509, end: 20120509

REACTIONS (3)
  - OVERDOSE [None]
  - SUICIDE ATTEMPT [None]
  - SOMNOLENCE [None]
